FAERS Safety Report 4779755-2 (Version None)
Quarter: 2005Q3

REPORT INFORMATION
  Report Type: 
  Country: None (occurrence: None)
  Receive Date: 20050914
  Receipt Date: 20041026
  Transmission Date: 20060218
  Serious: Yes (Hospitalization)
  Sender: FDA-Public Use
  Company Number: 163-20785-04070106

PATIENT
  Age: 55 Year
  Sex: Male

DRUGS (2)
  1. THALOMID [Suspect]
     Indication: GRAFT VERSUS HOST DISEASE
     Dosage: 400 MG, DAILY, ORAL
     Route: 048
     Dates: start: 20040426
  2. TACROLIMUS (TACROLIMUS) [Concomitant]

REACTIONS (1)
  - DYSPNOEA [None]
